FAERS Safety Report 14676082 (Version 1)
Quarter: 2018Q1

REPORT INFORMATION
  Report Type: Spontaneous
  Country: US (occurrence: US)
  Receive Date: 20180323
  Receipt Date: 20180323
  Transmission Date: 20180509
  Serious: No
  Sender: FDA-Public Use
  Company Number: US-TAIHO ONCOLOGY INC-EU-2018-00393

PATIENT
  Sex: Female
  Weight: 60.1 kg

DRUGS (11)
  1. ATROPINE SULFATE/DIPHENOXYLATE HYDROCHLORIDE [Concomitant]
     Dosage: NI
  2. GLIPIZIDE. [Concomitant]
     Active Substance: GLIPIZIDE
     Dosage: NI
  3. LONSURF [Suspect]
     Active Substance: TIPIRACIL HYDROCHLORIDE\TRIFLURIDINE
     Indication: COLON CANCER
     Route: 048
     Dates: start: 20171113
  4. PAROXETINE. [Concomitant]
     Active Substance: PAROXETINE
     Dosage: NI
  5. TYLENOL [Concomitant]
     Active Substance: ACETAMINOPHEN
     Dosage: NI
  6. MAGNESIUM [Concomitant]
     Active Substance: MAGNESIUM
     Dosage: NI
  7. METFORMIN [Concomitant]
     Active Substance: METFORMIN HYDROCHLORIDE
     Dosage: NI
  8. PANTOPRAZOLE [Concomitant]
     Active Substance: PANTOPRAZOLE
     Dosage: NI
  9. POTASSIUM CHLORIDE. [Concomitant]
     Active Substance: POTASSIUM CHLORIDE
     Dosage: NI
  10. PROMETHAZINE [Concomitant]
     Active Substance: PROMETHAZINE\PROMETHAZINE HYDROCHLORIDE
     Dosage: NI
  11. OXYCODONE [Concomitant]
     Active Substance: OXYCODONE
     Dosage: NI

REACTIONS (5)
  - Fatigue [Unknown]
  - Abdominal pain [Unknown]
  - Nausea [Unknown]
  - Disease progression [Unknown]
  - Weight decreased [Unknown]
